FAERS Safety Report 21771196 (Version 1)
Quarter: 2022Q4

REPORT INFORMATION
  Report Type: Report from Study
  Country: TH (occurrence: TH)
  Receive Date: 20221223
  Receipt Date: 20221223
  Transmission Date: 20230113
  Serious: Yes (Hospitalization, Other)
  Sender: FDA-Public Use
  Company Number: TH-002147023-NVSC2021TH069315

PATIENT
  Sex: Female

DRUGS (1)
  1. ENTRESTO [Suspect]
     Active Substance: SACUBITRIL\VALSARTAN
     Indication: Cardiac failure
     Dosage: 0.5 DF (100 MG) BID (TWICE DAILY AFTER MEAL MORNING AND EVENING)
     Route: 048

REACTIONS (3)
  - Sepsis [Unknown]
  - Dyspnoea [Unknown]
  - Wrong technique in product usage process [Unknown]
